FAERS Safety Report 8201659-3 (Version None)
Quarter: 2012Q1

REPORT INFORMATION
  Report Type: 
  Country: None (occurrence: None)
  Receive Date: 20120312
  Receipt Date: 20120302
  Transmission Date: 20120608
  Serious: Yes (Hospitalization)
  Sender: FDA-Public Use
  Company Number: US-BAYER-201026158NA

PATIENT
  Age: 32 Year
  Sex: Female
  Weight: 72.562 kg

DRUGS (2)
  1. MIRENA [Suspect]
     Indication: CONTRACEPTION
     Dosage: 20 MCG/24HR, CONT
     Route: 015
     Dates: start: 20100519, end: 20100611
  2. GENERAL ANESTHESIA [Concomitant]
     Indication: UTERINE DILATION AND CURETTAGE
     Dosage: UNK
     Dates: start: 20100709, end: 20100709

REACTIONS (3)
  - ABORTION INCOMPLETE [None]
  - ECTOPIC PREGNANCY [None]
  - DEVICE EXPULSION [None]
